FAERS Safety Report 10331875 (Version 1)
Quarter: 2014Q3

REPORT INFORMATION
  Report Type: Spontaneous
  Country: US (occurrence: None)
  Receive Date: 20140721
  Receipt Date: 20140721
  Transmission Date: 20150326
  Serious: Yes (Other)
  Sender: FDA-Public Use
  Company Number: None

PATIENT
  Age: 61 Year
  Sex: Female
  Weight: 77.11 kg

DRUGS (1)
  1. SIMPONI [Suspect]
     Active Substance: GOLIMUMAB
     Indication: RHEUMATOID ARTHRITIS
     Route: 058
     Dates: start: 20140406, end: 20140607

REACTIONS (7)
  - Peripheral swelling [None]
  - Influenza like illness [None]
  - Nausea [None]
  - Rash [None]
  - Malaise [None]
  - Weight increased [None]
  - Headache [None]

NARRATIVE: CASE EVENT DATE: 20140607
